FAERS Safety Report 15504507 (Version 3)
Quarter: 2020Q1

REPORT INFORMATION
  Report Type: Report from Study
  Country: US (occurrence: US)
  Receive Date: 20181016
  Receipt Date: 20200304
  Transmission Date: 20200409
  Serious: Yes (Other)
  Sender: FDA-Public Use
  Company Number: US-SA-2018SA279932

PATIENT
  Age: 61 Year
  Sex: Female

DRUGS (2)
  1. DUPILUMAB [Suspect]
     Active Substance: DUPILUMAB
     Indication: DERMATITIS ATOPIC
     Dosage: 300 MG, QOW
     Route: 058
     Dates: start: 20170426
  2. DUPILUMAB [Suspect]
     Active Substance: DUPILUMAB
     Dosage: 300 MG, QOW
     Route: 058
     Dates: start: 20191113

REACTIONS (13)
  - Lacrimation increased [Unknown]
  - Incorrect dose administered [Unknown]
  - Peripheral swelling [Unknown]
  - Rash [Recovering/Resolving]
  - Eyelid irritation [Unknown]
  - Pruritus [Unknown]
  - Carpal tunnel decompression [Recovered/Resolved]
  - Skin reaction [Not Recovered/Not Resolved]
  - Joint swelling [Unknown]
  - Erythema [Unknown]
  - Erythema of eyelid [Unknown]
  - Weight increased [Unknown]
  - Tenderness [Unknown]

NARRATIVE: CASE EVENT DATE: 20170426
